FAERS Safety Report 16223477 (Version 1)
Quarter: 2019Q2

REPORT INFORMATION
  Report Type: Spontaneous
  Country: FR (occurrence: FR)
  Receive Date: 20190422
  Receipt Date: 20190422
  Transmission Date: 20190711
  Serious: Yes (Hospitalization)
  Sender: FDA-Public Use
  Company Number: FR-PFIZER INC-2019163113

PATIENT
  Age: 34 Year
  Sex: Female
  Weight: 43 kg

DRUGS (5)
  1. ERYTHROGEL [Concomitant]
     Dosage: UNK
     Route: 061
     Dates: end: 20190130
  2. XANAX [Concomitant]
     Active Substance: ALPRAZOLAM
     Dosage: 0.5 MG, 1X/DAY
     Route: 048
     Dates: end: 20190130
  3. ANTADYS [Concomitant]
     Active Substance: FLURBIPROFEN
     Dosage: UNK
     Route: 048
  4. EFFEXOR [Suspect]
     Active Substance: VENLAFAXINE HYDROCHLORIDE
     Dosage: 75 MG, 1X/DAY
     Route: 048
     Dates: end: 20190130
  5. NUROFEN [IBUPROFEN] [Concomitant]
     Active Substance: IBUPROFEN
     Dosage: 3 DF, 1X/DAY
     Route: 048
     Dates: start: 20190125, end: 20190129

REACTIONS (3)
  - Euphoric mood [Recovering/Resolving]
  - Delirium [Recovered/Resolved]
  - Agitation [Recovered/Resolved]

NARRATIVE: CASE EVENT DATE: 20190126
